FAERS Safety Report 5893829-4 (Version None)
Quarter: 2008Q3

REPORT INFORMATION
  Report Type: 
  Country: None (occurrence: None)
  Receive Date: 20080923
  Receipt Date: 20071029
  Transmission Date: 20090109
  Serious: No
  Sender: FDA-Public Use
  Company Number: US-ASTRAZENECA-2007UW25030

PATIENT
  Age: 55 Year
  Sex: Female
  Weight: 64.9 kg

DRUGS (3)
  1. SEROQUEL [Suspect]
     Indication: NERVOUSNESS
     Route: 048
     Dates: start: 20071028, end: 20071029
  2. SEROQUEL [Suspect]
     Indication: HALLUCINATION, AUDITORY
     Route: 048
     Dates: start: 20071028, end: 20071029
  3. TRAZODONE HCL [Concomitant]

REACTIONS (6)
  - CONSTIPATION [None]
  - DECREASED APPETITE [None]
  - DRY MOUTH [None]
  - DYSGEUSIA [None]
  - SWOLLEN TONGUE [None]
  - VISION BLURRED [None]
